FAERS Safety Report 18323579 (Version 1)
Quarter: 2020Q3

REPORT INFORMATION
  Report Type: Report from Study
  Country: GB (occurrence: GB)
  Receive Date: 20200928
  Receipt Date: 20200928
  Transmission Date: 20201103
  Serious: Yes (Hospitalization)
  Sender: FDA-Public Use
  Company Number: GB-JNJFOC-20200931935

PATIENT
  Age: 72 Year
  Sex: Female
  Weight: 71.2 kg

DRUGS (18)
  1. STELARA [Suspect]
     Active Substance: USTEKINUMAB
     Indication: PSORIASIS
     Route: 058
     Dates: start: 20160404
  2. FLUTICASONE. [Concomitant]
     Active Substance: FLUTICASONE
     Dates: start: 20191016
  3. PARACETAMOL [Concomitant]
     Active Substance: ACETAMINOPHEN
     Dates: start: 20160505
  4. CANDESARTAN. [Concomitant]
     Active Substance: CANDESARTAN
     Dates: start: 20190128
  5. APIXABAN [Concomitant]
     Active Substance: APIXABAN
     Dates: start: 20200326
  6. METRONIDAZOLE. [Concomitant]
     Active Substance: METRONIDAZOLE
     Dates: start: 20200410, end: 20200428
  7. TERBUTALINE [Concomitant]
     Active Substance: TERBUTALINE
     Dates: start: 20070701
  8. SERETIDE [Concomitant]
     Active Substance: FLUTICASONE PROPIONATE\SALMETEROL XINAFOATE
     Dates: start: 20070701, end: 20191015
  9. THYROXINE [Concomitant]
     Active Substance: LEVOTHYROXINE
     Dates: start: 20150601
  10. BECLOMETHASONE                     /00212601/ [Concomitant]
     Active Substance: BECLOMETHASONE
     Dates: start: 20170621
  11. INDAPAMIDE. [Concomitant]
     Active Substance: INDAPAMIDE
     Dates: start: 20181121, end: 20190930
  12. CODEINE PHOSPHATE [Concomitant]
     Active Substance: CODEINE PHOSPHATE
     Dates: start: 20200410
  13. FERROUS FUMARATE [Concomitant]
     Active Substance: FERROUS FUMARATE
     Dates: start: 20200101, end: 20200201
  14. COLECALCIFEROL [Concomitant]
     Active Substance: CHOLECALCIFEROL
     Dates: start: 20200101, end: 20200201
  15. OMEPRAZOLE. [Concomitant]
     Active Substance: OMEPRAZOLE
     Dates: start: 20080701
  16. BISOPROLOL [Concomitant]
     Active Substance: BISOPROLOL
     Dates: start: 20190720
  17. CIPROFLOXACIN. [Concomitant]
     Active Substance: CIPROFLOXACIN
     Dates: start: 20200410, end: 20200428
  18. HYOSCINE BUTYLBROMIDE [Concomitant]
     Active Substance: BUTYLSCOPOLAMINE BROMIDE
     Dates: start: 20200601

REACTIONS (2)
  - Cholelithiasis [Recovered/Resolved]
  - Cholecystitis infective [Not Recovered/Not Resolved]

NARRATIVE: CASE EVENT DATE: 20190409
